FAERS Safety Report 8915876 (Version 1)
Quarter: 2012Q4

REPORT INFORMATION
  Report Type: 
  Country: SE (occurrence: SE)
  Receive Date: 20121119
  Receipt Date: 20121119
  Transmission Date: 20130627
  Serious: Yes (Hospitalization)
  Sender: FDA-Public Use
  Company Number: SE-PFIZER INC-2012285812

PATIENT
  Age: 29 Year
  Sex: Male
  Weight: 116 kg

DRUGS (6)
  1. GENOTROPIN [Suspect]
     Dosage: 0.7 mg, 1x/day,7 injections/week
     Route: 058
     Dates: start: 20050212
  2. HYDROCORTISONE [Concomitant]
     Indication: ACTH DECREASED
     Dosage: UNK
     Dates: start: 200311
  3. BRICANYL [Concomitant]
     Indication: ASTHMA
     Dosage: UNK
     Dates: start: 20041026
  4. NEBIDO [Concomitant]
     Indication: LUTEINIZING HORMONE DEFICIENCY
     Dosage: UNK
     Dates: start: 20060301
  5. NEBIDO [Concomitant]
     Indication: FOLLICLE-STIMULATING HORMONE DEFICIENCY
  6. NEBIDO [Concomitant]
     Indication: HYPOGONADISM MALE

REACTIONS (2)
  - Pyrexia [Unknown]
  - Nasopharyngitis [Unknown]
